FAERS Safety Report 8886749 (Version 2)
Quarter: 2013Q1

REPORT INFORMATION
  Report Type: Spontaneous
  Country: US (occurrence: US)
  Receive Date: 20121105
  Receipt Date: 20130102
  Transmission Date: 20140127
  Serious: Yes (Other)
  Sender: FDA-Public Use
  Company Number: US-TEVA-367543USA

PATIENT
  Age: 59 Year
  Sex: Female

DRUGS (1)
  1. COPAXONE [Suspect]
     Indication: MULTIPLE SCLEROSIS
     Dates: start: 20121001, end: 20121029

REACTIONS (5)
  - Gastrointestinal disorder [Unknown]
  - Local swelling [Unknown]
  - Nasal congestion [Unknown]
  - Pain [Unknown]
  - Muscle spasms [Unknown]
